FAERS Safety Report 5631526-0 (Version None)
Quarter: 2008Q1

REPORT INFORMATION
  Report Type: 
  Country: None (occurrence: None)
  Receive Date: 20080215
  Receipt Date: 20080206
  Transmission Date: 20080703
  Serious: Yes (Death)
  Sender: FDA-Public Use
  Company Number: OXER20080002

PATIENT
  Age: 28 Year
  Sex: Male

DRUGS (6)
  1. OXYCODONE HCL EXTENDED-RELEASE [Suspect]
     Dates: end: 20080122
  2. HYDROCODONE BITARTRATE [Suspect]
     Dates: end: 20080122
  3. DIAZEPAM [Suspect]
     Dates: end: 20080122
  4. TEMAZEPAM [Suspect]
     Dates: end: 20080122
  5. ALPRAZOLAM [Suspect]
     Dates: end: 20080122
  6. DOXYLAMINE [Suspect]
     Dates: end: 20080122

REACTIONS (5)
  - DRUG TOXICITY [None]
  - FATIGUE [None]
  - LOSS OF CONSCIOUSNESS [None]
  - MULTIPLE DRUG OVERDOSE ACCIDENTAL [None]
  - THINKING ABNORMAL [None]
